FAERS Safety Report 12296999 (Version 2)
Quarter: 2016Q3

REPORT INFORMATION
  Report Type: Spontaneous
  Country: US (occurrence: US)
  Receive Date: 20160422
  Receipt Date: 20160714
  Transmission Date: 20161109
  Serious: No
  Sender: FDA-Public Use
  Company Number: US-SA-2016SA031783

PATIENT
  Age: 57 Year
  Sex: Female
  Weight: 104.42 kg

DRUGS (9)
  1. AFREZZA [Suspect]
     Active Substance: INSULIN HUMAN
     Route: 055
  2. ATENOLOL. [Concomitant]
     Active Substance: ATENOLOL
     Indication: BLOOD PRESSURE MEASUREMENT
  3. GLYBURIDE. [Concomitant]
     Active Substance: GLYBURIDE
     Indication: PRODUCT USED FOR UNKNOWN INDICATION
     Route: 048
  4. LISINOPRIL. [Concomitant]
     Active Substance: LISINOPRIL
     Indication: BLOOD PRESSURE MEASUREMENT
  5. AFREZZA [Suspect]
     Active Substance: INSULIN HUMAN
     Indication: TYPE 2 DIABETES MELLITUS
     Route: 055
     Dates: start: 20160202, end: 201604
  6. JARDIANCE [Concomitant]
     Active Substance: EMPAGLIFLOZIN
     Indication: PRODUCT USED FOR UNKNOWN INDICATION
     Route: 048
  7. AFREZZA [Suspect]
     Active Substance: INSULIN HUMAN
     Route: 055
     Dates: start: 201604
  8. REPATHA [Concomitant]
     Active Substance: EVOLOCUMAB
     Indication: PRODUCT USED FOR UNKNOWN INDICATION
  9. AFREZZA [Suspect]
     Active Substance: INSULIN HUMAN
     Route: 055
     Dates: start: 201604

REACTIONS (9)
  - Dysphonia [Unknown]
  - Visual impairment [Unknown]
  - Drug ineffective [Unknown]
  - Hypotension [Unknown]
  - Photosensitivity reaction [Unknown]
  - Balance disorder [Unknown]
  - Cough [Unknown]
  - Glycosylated haemoglobin increased [Unknown]
  - Fatigue [Unknown]

NARRATIVE: CASE EVENT DATE: 20160220
